FAERS Safety Report 26010448 (Version 1)
Quarter: 2025Q4

REPORT INFORMATION
  Report Type: Spontaneous
  Country: EU (occurrence: EU)
  Receive Date: 20251107
  Receipt Date: 20251107
  Transmission Date: 20260117
  Serious: Yes (Hospitalization, Other)
  Sender: BAXTER
  Company Number: None

PATIENT
  Age: 47 Year
  Sex: Female
  Weight: 154 kg

DRUGS (12)
  1. CYCLOPHOSPHAMIDE [Suspect]
     Active Substance: CYCLOPHOSPHAMIDE
     Indication: Breast cancer
     Dosage: 5500 MG/M2, CYCLICAL, TOTAL 6 COURSES
     Route: 042
     Dates: start: 20080101
  2. EPIRUBICIN [Suspect]
     Active Substance: EPIRUBICIN
     Indication: Breast cancer
     Dosage: 100 MG/M2, CYCLICAL
     Route: 065
     Dates: start: 20080101
  3. FLUOROURACIL [Suspect]
     Active Substance: FLUOROURACIL
     Indication: Breast cancer
     Dosage: 500 MG/M2, CYCLICAL, TOTAL 6 COURSES
     Route: 042
     Dates: start: 20080101
  4. HERCEPTIN [Suspect]
     Active Substance: TRASTUZUMAB
     Indication: HER2 positive breast cancer
     Dosage: 420 MG, CYCLICAL
     Route: 042
     Dates: start: 20130801, end: 20160229
  5. HERCEPTIN [Suspect]
     Active Substance: TRASTUZUMAB
     Indication: HER2 positive breast cancer
     Route: 042
     Dates: start: 20130701
  6. HERCEPTIN [Suspect]
     Active Substance: TRASTUZUMAB
     Dosage: 444 MG, CYCLICAL
     Route: 042
     Dates: start: 20131201
  7. PERJETA [Suspect]
     Active Substance: PERTUZUMAB
     Indication: HER2 positive breast cancer
     Dosage: 420 MG, CYCLICAL
     Route: 042
     Dates: start: 20140201
  8. PERJETA [Suspect]
     Active Substance: PERTUZUMAB
     Dosage: 840 MG
     Route: 042
     Dates: start: 20140217, end: 20160229
  9. TAXOTERE [Suspect]
     Active Substance: DOCETAXEL
     Indication: Breast cancer
     Dosage: 184 MG, CYCLICAL
     Route: 065
     Dates: start: 20080401
  10. TAXOTERE [Suspect]
     Active Substance: DOCETAXEL
     Route: 065
     Dates: start: 201307
  11. EBASTINE [Concomitant]
     Active Substance: EBASTINE
     Route: 048
  12. ARIMIDEX [Concomitant]
     Active Substance: ANASTROZOLE
     Indication: Breast cancer
     Dosage: 1 MG
     Route: 048
     Dates: start: 20131217

REACTIONS (4)
  - Cardiac disorder [Unknown]
  - Second primary malignancy [Not Recovered/Not Resolved]
  - Non-Hodgkin^s lymphoma [Not Recovered/Not Resolved]
  - Lymphoma [Not Recovered/Not Resolved]

NARRATIVE: CASE EVENT DATE: 20150313
